FAERS Safety Report 7291490-8 (Version None)
Quarter: 2011Q1

REPORT INFORMATION
  Report Type: 
  Country: None (occurrence: None)
  Receive Date: 20110202
  Receipt Date: 20100715
  Transmission Date: 20110831
  Serious: Yes (Disabling, Other)
  Sender: FDA-Public Use
  Company Number: ALA_00765_2010

PATIENT
  Sex: Female
  Weight: 45.3597 kg

DRUGS (16)
  1. PERIACTIN [Concomitant]
  2. ANTIDEPRESSANTS SSRI [Concomitant]
  3. LIDOCAINE [Concomitant]
  4. SINEMET [Concomitant]
  5. LIORESAL [Concomitant]
  6. HALOPERIDOL [Concomitant]
  7. ZOLOFT [Concomitant]
  8. MYSOLINE [Concomitant]
  9. DEXAMETHASONE [Concomitant]
  10. REGLAN [Suspect]
     Indication: MIGRAINE
     Dosage: (10 MG ORAL)
     Route: 048
     Dates: start: 19901016, end: 19910101
  11. REGLAN [Suspect]
     Indication: NAUSEA
     Dosage: (10 MG ORAL)
     Route: 048
     Dates: start: 19901016, end: 19910101
  12. KLONOPIN [Concomitant]
  13. ARTANE [Concomitant]
  14. NORTRIPTYLINE [Concomitant]
  15. SERTRALINE [Concomitant]
  16. BOTOX [Concomitant]

REACTIONS (20)
  - BLEPHAROSPASM [None]
  - DYSTONIA [None]
  - FACET JOINT SYNDROME [None]
  - MYOSITIS [None]
  - NEURALGIA [None]
  - DYSKINESIA [None]
  - NECK PAIN [None]
  - TEMPOROMANDIBULAR JOINT SYNDROME [None]
  - HEADACHE [None]
  - MIGRAINE [None]
  - ECONOMIC PROBLEM [None]
  - BRUXISM [None]
  - PARAESTHESIA [None]
  - TENDONITIS [None]
  - TARDIVE DYSKINESIA [None]
  - EMOTIONAL DISORDER [None]
  - MUSCLE TWITCHING [None]
  - EXCESSIVE EYE BLINKING [None]
  - NAUSEA [None]
  - FACIAL PARESIS [None]
